FAERS Safety Report 7516934-5 (Version None)
Quarter: 2011Q2

REPORT INFORMATION
  Report Type: 
  Country: None (occurrence: None)
  Receive Date: 20110526
  Receipt Date: 20110526
  Transmission Date: 20111010
  Serious: Yes (Hospitalization)
  Sender: FDA-Public Use
  Company Number: None

PATIENT
  Age: 5 Year
  Sex: Female
  Weight: 20 kg

DRUGS (1)
  1. TREPROSTINIL 1MG/ML UNITED THERAPEUTICS [Suspect]
     Indication: PULMONARY HYPERTENSION
     Dosage: 42 NG/KG/MIN CO SQ
     Route: 058

REACTIONS (1)
  - CONVULSION [None]
